FAERS Safety Report 25900934 (Version 1)
Quarter: 2025Q4

REPORT INFORMATION
  Report Type: Spontaneous
  Country: EU (occurrence: SN)
  Receive Date: 20251009
  Receipt Date: 20251009
  Transmission Date: 20260118
  Serious: Yes (Hospitalization)
  Sender: ORION
  Company Number: EU-Orion Corporation ORION PHARMA-TREX2025-0157

PATIENT
  Sex: Male

DRUGS (2)
  1. METHOTREXATE [Suspect]
     Active Substance: METHOTREXATE
     Indication: Rheumatoid arthritis
     Dosage: STRENGTH: 2.5 MG, EVERY THURSDAY, 4 TABLETS
  2. METHOTREXATE [Suspect]
     Active Substance: METHOTREXATE
     Dosage: STRENGTH: 10 MG, 4 TABLETS

REACTIONS (5)
  - Accidental overdose [Unknown]
  - Incorrect dose administered [Unknown]
  - Pyrexia [Unknown]
  - Dyspepsia [Unknown]
  - Aspartate aminotransferase increased [Unknown]
